FAERS Safety Report 24014493 (Version 1)
Quarter: 2024Q2

REPORT INFORMATION
  Report Type: Spontaneous
  Country: US (occurrence: US)
  Receive Date: 20240626
  Receipt Date: 20240626
  Transmission Date: 20240716
  Serious: Yes (Other)
  Sender: FDA-Public Use
  Company Number: US-SUN PHARMACEUTICAL INDUSTRIES LTD-2024R1-452874

PATIENT
  Age: 46 Year
  Sex: Female

DRUGS (4)
  1. HYDROXYCHLOROQUINE [Suspect]
     Active Substance: HYDROXYCHLOROQUINE
     Indication: Antifungal prophylaxis
     Dosage: 200 MILLIGRAM, BID
     Route: 065
  2. PREDNISONE [Suspect]
     Active Substance: PREDNISONE
     Indication: Antifungal prophylaxis
     Dosage: 60 MILLIGRAM, DAILY
     Route: 048
  3. SULFAMETHOXAZOLE\TRIMETHOPRIM [Suspect]
     Active Substance: SULFAMETHOXAZOLE\TRIMETHOPRIM
     Indication: Antifungal prophylaxis
     Dosage: 800/160 MG, 3/WEEK
     Route: 065
  4. MYCOPHENOLATE MOFETIL [Suspect]
     Active Substance: MYCOPHENOLATE MOFETIL
     Indication: Antifungal prophylaxis
     Dosage: 1500 MILLIGRAM, BID
     Route: 065

REACTIONS (5)
  - Condition aggravated [Unknown]
  - Tenosynovitis [Unknown]
  - Oedema [Recovered/Resolved]
  - Disease recurrence [Unknown]
  - Histoplasmosis disseminated [Recovered/Resolved]
